FAERS Safety Report 8320007-1 (Version None)
Quarter: 2012Q2

REPORT INFORMATION
  Report Type: 
  Country: None (occurrence: None)
  Receive Date: 20120427
  Receipt Date: 20120412
  Transmission Date: 20120825
  Serious: Yes (Other)
  Sender: FDA-Public Use
  Company Number: US-BAXTER-2012BAX001368

PATIENT
  Sex: Female
  Weight: 38.6 kg

DRUGS (12)
  1. CALCIUM [Concomitant]
     Dosage: 3000 UNITS
     Route: 048
  2. FLONASE [Concomitant]
     Dosage: 15 MCG
     Route: 045
  3. VITAMIN D [Concomitant]
     Dosage: 2000 UNITS
     Route: 048
  4. ASCORBIC ACID [Concomitant]
     Route: 048
  5. SINGULAIR [Concomitant]
  6. ALBUTEROL [Concomitant]
     Dosage: 2 PUFFS
  7. NAPROXEN [Concomitant]
     Route: 048
  8. GAMMAGARD LIQUID [Suspect]
     Indication: SELECTIVE IGG SUBCLASS DEFICIENCY
     Route: 058
     Dates: end: 20110201
  9. NAPROXEN [Concomitant]
     Indication: JOINT SWELLING
  10. PROAIR HFA [Concomitant]
  11. NEXIUM [Concomitant]
     Route: 048
  12. IMIPRAMINE [Concomitant]
     Route: 048

REACTIONS (5)
  - PHARYNGITIS STREPTOCOCCAL [None]
  - MALAISE [None]
  - WHITE BLOOD CELL COUNT DECREASED [None]
  - DRUG EFFECT DECREASED [None]
  - BLOOD IMMUNOGLOBULIN G DECREASED [None]
